FAERS Safety Report 13157684 (Version 1)
Quarter: 2017Q1

REPORT INFORMATION
  Report Type: Spontaneous
  Country: US (occurrence: US)
  Receive Date: 20170127
  Receipt Date: 20170127
  Transmission Date: 20170428
  Serious: No
  Sender: FDA-Public Use
  Company Number: US-BAYER-2017-015185

PATIENT
  Age: 37 Year
  Sex: Female
  Weight: 111 kg

DRUGS (2)
  1. ALEVE [Suspect]
     Active Substance: NAPROXEN SODIUM
     Indication: PAIN
     Route: 048
     Dates: start: 2015
  2. ASTHMA ^18^ [Concomitant]

REACTIONS (1)
  - Breast pain [Not Recovered/Not Resolved]
